FAERS Safety Report 6819736-8 (Version None)
Quarter: 2010Q3

REPORT INFORMATION
  Report Type: 
  Country: None (occurrence: None)
  Receive Date: 20100707
  Receipt Date: 20100622
  Transmission Date: 20110219
  Serious: Yes (Other)
  Sender: FDA-Public Use
  Company Number: US-JNJFOC-20100506432

PATIENT
  Age: 2 Month
  Sex: Male
  Weight: 5.44 kg

DRUGS (2)
  1. CONCENTRATED TYLENOL INFANT DROPS [Suspect]
     Route: 048
  2. CONCENTRATED TYLENOL INFANT DROPS [Suspect]
     Indication: IMMUNISATION
     Route: 048

REACTIONS (5)
  - FEELING ABNORMAL [None]
  - JAUNDICE [None]
  - PRODUCT MEASURED POTENCY ISSUE [None]
  - PYREXIA [None]
  - TREMOR [None]
